FAERS Safety Report 11605001 (Version 4)
Quarter: 2015Q4

REPORT INFORMATION
  Report Type: Spontaneous
  Country: US (occurrence: US)
  Receive Date: 20151007
  Receipt Date: 20151204
  Transmission Date: 20160304
  Serious: Yes (Life-Threatening, Hospitalization, Other)
  Sender: FDA-Public Use
  Company Number: US-PFIZER INC-2015331326

PATIENT
  Age: 90 Year
  Sex: Female
  Weight: 52 kg

DRUGS (6)
  1. COUMADIN [Suspect]
     Active Substance: WARFARIN SODIUM
     Indication: CARDIAC VALVE DISEASE
     Dosage: 2.5 MG DAILY EXCEPT 1.25 MG BY MOUTH ON TUESDAY, THURSDAY, SATURDAYS
     Route: 048
  2. COUMADIN [Suspect]
     Active Substance: WARFARIN SODIUM
     Indication: ATRIAL FIBRILLATION
     Dosage: 2.5 MG DAILY EXCEPT 1.25 MG BY MOUTH ON TUESDAY, THURSDAY, SATURDAYS
     Route: 048
  3. COUMADIN [Suspect]
     Active Substance: WARFARIN SODIUM
     Indication: PULMONARY HYPERTENSION
  4. COUMADIN [Suspect]
     Active Substance: WARFARIN SODIUM
     Indication: PROPHYLAXIS
     Dosage: 2.5 MG, DAILY (1.25 MON TO FRIDAY)
  5. REVATIO [Suspect]
     Active Substance: SILDENAFIL CITRATE
     Indication: PULMONARY HYPERTENSION
     Dosage: 10 MG, 2X/DAY (20 MG TABLET BY MOUTH HALF IN THE MORNING AND HALF IN THE EVENING)
     Route: 048
     Dates: start: 2012
  6. COUMADIN [Suspect]
     Active Substance: WARFARIN SODIUM
     Indication: MITRAL VALVE PROLAPSE

REACTIONS (7)
  - Cerebrovascular accident [Recovering/Resolving]
  - Muscular weakness [Not Recovered/Not Resolved]
  - Hepatic haematoma [Recovered/Resolved]
  - Monoplegia [Recovering/Resolving]
  - Injury [Recovered/Resolved]
  - Fall [Recovered/Resolved]
  - Sensory loss [Unknown]

NARRATIVE: CASE EVENT DATE: 20150805
